FAERS Safety Report 17878236 (Version 1)
Quarter: 2020Q2

REPORT INFORMATION
  Report Type: Report from Study
  Country: None (occurrence: US)
  Receive Date: 20200609
  Receipt Date: 20200609
  Transmission Date: 20200714
  Serious: Yes (Other)
  Sender: FDA-Public Use
  Company Number: US-ABBVIE-20K-163-3432312-00

PATIENT
  Age: 70 Year
  Sex: Male

DRUGS (1)
  1. HUMIRA [Suspect]
     Active Substance: ADALIMUMAB
     Indication: CROHN^S DISEASE
     Dosage: CITRATE FREE
     Route: 058

REACTIONS (4)
  - Oropharyngeal pain [Recovered/Resolved]
  - Food intolerance [Recovered/Resolved]
  - Diarrhoea [Recovered/Resolved]
  - Pancreatolithiasis [Unknown]

NARRATIVE: CASE EVENT DATE: 20200515
